FAERS Safety Report 10187120 (Version 1)
Quarter: 2014Q2

REPORT INFORMATION
  Report Type: Spontaneous
  Country: US (occurrence: US)
  Receive Date: 20140522
  Receipt Date: 20140522
  Transmission Date: 20141212
  Serious: Yes (Hospitalization)
  Sender: FDA-Public Use
  Company Number: US-ASTELLAS-2014US005577

PATIENT
  Age: 48 Year
  Sex: Male

DRUGS (1)
  1. LEXISCAN [Suspect]
     Indication: PRODUCT USED FOR UNKNOWN INDICATION
     Dosage: 0.4MG/5ML INJECTION, UNKNOWN FREQ.
     Route: 042
     Dates: start: 20140325, end: 20140325

REACTIONS (3)
  - Blood glucose increased [Unknown]
  - Chest pain [Unknown]
  - Headache [Unknown]
